FAERS Safety Report 20169030 (Version 1)
Quarter: 2021Q4

REPORT INFORMATION
  Report Type: Spontaneous
  Country: FR (occurrence: FR)
  Receive Date: 20211210
  Receipt Date: 20211210
  Transmission Date: 20220303
  Serious: Yes (Hospitalization, Other)
  Sender: FDA-Public Use
  Company Number: None

PATIENT
  Age: 77 Year
  Sex: Female
  Weight: 46 kg

DRUGS (2)
  1. YERVOY [Suspect]
     Active Substance: IPILIMUMAB
     Indication: Product used for unknown indication
     Dosage: 155 MILLIGRAM
     Route: 042
     Dates: start: 20210817, end: 20211012
  2. OPDIVO [Suspect]
     Active Substance: NIVOLUMAB
     Indication: Product used for unknown indication
     Dosage: 52 MILLIGRAM
     Route: 042
     Dates: start: 20210817, end: 20211012

REACTIONS (2)
  - Colitis [Recovered/Resolved]
  - Diabetic metabolic decompensation [Not Recovered/Not Resolved]

NARRATIVE: CASE EVENT DATE: 20211024
